FAERS Safety Report 22184250 (Version 1)
Quarter: 2023Q2

REPORT INFORMATION
  Report Type: Report from Study
  Country: US (occurrence: US)
  Receive Date: 20230407
  Receipt Date: 20230407
  Transmission Date: 20230722
  Serious: Yes (Death, Hospitalization)
  Sender: FDA-Public Use
  Company Number: US-002147023-NVSC2023US080347

PATIENT
  Age: 57 Year
  Sex: Male
  Weight: 73 kg

DRUGS (1)
  1. COSENTYX [Suspect]
     Active Substance: SECUKINUMAB
     Indication: Psoriasis
     Dosage: 150 MG, QMO (Q4WKS)
     Route: 058
     Dates: start: 20120101, end: 20140101

REACTIONS (2)
  - Hepatic cancer [Fatal]
  - Liver disorder [Unknown]

NARRATIVE: CASE EVENT DATE: 20221130
